FAERS Safety Report 4279728-2 (Version None)
Quarter: 2004Q1

REPORT INFORMATION
  Report Type: 
  Country: None (occurrence: None)
  Receive Date: 20040127
  Receipt Date: 20031211
  Transmission Date: 20041129
  Serious: Yes (Disabling)
  Sender: FDA-Public Use
  Company Number: WAES 0312USA01320

PATIENT
  Age: 67 Year
  Sex: Female

DRUGS (5)
  1. LASIX [Concomitant]
  2. INSULIN [Concomitant]
  3. SYNTHROID [Concomitant]
  4. MICRO-K [Concomitant]
  5. ZOCOR [Suspect]
     Indication: HYPERCHOLESTEROLAEMIA
     Route: 048
     Dates: start: 20010101

REACTIONS (2)
  - DYSSTASIA [None]
  - PAIN IN EXTREMITY [None]
